FAERS Safety Report 7265888-8 (Version None)
Quarter: 2011Q1

REPORT INFORMATION
  Report Type: 
  Country: None (occurrence: None)
  Receive Date: 20110131
  Receipt Date: 20110121
  Transmission Date: 20110831
  Serious: Yes (Hospitalization)
  Sender: FDA-Public Use
  Company Number: B0693238A

PATIENT
  Sex: Male

DRUGS (3)
  1. DEXAMETHASONE PHOSPHATE [Concomitant]
     Route: 030
  2. ARIXTRA [Suspect]
     Indication: DEEP VEIN THROMBOSIS
     Route: 058
     Dates: start: 20100915, end: 20101117
  3. OXYCONTIN [Concomitant]
     Route: 048

REACTIONS (1)
  - INCREASED TENDENCY TO BRUISE [None]
